FAERS Safety Report 15549955 (Version 7)
Quarter: 2019Q3

REPORT INFORMATION
  Report Type: Report from Study
  Country: US (occurrence: US)
  Receive Date: 20181025
  Receipt Date: 20190807
  Transmission Date: 20191004
  Serious: Yes (Hospitalization, Other)
  Sender: FDA-Public Use
  Company Number: US-ROCHE-2197925

PATIENT
  Age: 83 Year
  Sex: Male

DRUGS (14)
  1. ESBRIET [Suspect]
     Active Substance: PIRFENIDONE
     Dosage: 2 PILLS THRICE A DAY
     Route: 048
     Dates: start: 201809
  2. PRESERVISION AREDS [Concomitant]
     Active Substance: MINERALS\VITAMINS
     Route: 048
  3. PREDNISONE. [Concomitant]
     Active Substance: PREDNISONE
     Dosage: AS DIRECTED ORALLY 4 TABLETS FOR 3 DAYS, 3 TABLETS FOR 3 DAYS, 2 TABLETS FOR 3 DAYS THEN 1?TABLET FO
     Route: 048
  4. CARVEDILOL. [Concomitant]
     Active Substance: CARVEDILOL
     Dosage: WITH FOOD
     Route: 048
  5. ESBRIET [Suspect]
     Active Substance: PIRFENIDONE
     Dosage: THREE 267MG THREE TIMES A DAY
     Route: 048
     Dates: start: 2018
  6. ATORVASTATIN [Concomitant]
     Active Substance: ATORVASTATIN
     Route: 065
  7. ECOTRIN [Concomitant]
     Active Substance: ASPIRIN
     Route: 065
  8. ESBRIET [Suspect]
     Active Substance: PIRFENIDONE
     Indication: IDIOPATHIC PULMONARY FIBROSIS
     Route: 048
     Dates: start: 20180924, end: 20181007
  9. ESBRIET [Suspect]
     Active Substance: PIRFENIDONE
     Route: 048
  10. PRILOSEC [Concomitant]
     Active Substance: OMEPRAZOLE MAGNESIUM
     Dosage: PRILOSEC OTC DELAYED RELEASE
     Route: 048
  11. OXYGEN. [Concomitant]
     Active Substance: OXYGEN
     Dosage: 2 L
     Route: 065
  12. NORVASC [Concomitant]
     Active Substance: AMLODIPINE BESYLATE
     Route: 048
  13. ESBRIET [Suspect]
     Active Substance: PIRFENIDONE
     Dosage: TWO PILLS THREE TIMES A DAY
     Route: 048
     Dates: start: 20181008, end: 20181009
  14. ESBRIET [Suspect]
     Active Substance: PIRFENIDONE
     Dosage: RESTARTED THERAPY (THERAPY DETAILS UNKNOWN)
     Route: 048

REACTIONS (19)
  - Malaise [Unknown]
  - Anxiety [Recovered/Resolved]
  - Nausea [Unknown]
  - Ageusia [Not Recovered/Not Resolved]
  - Decreased appetite [Not Recovered/Not Resolved]
  - Diarrhoea [Recovered/Resolved with Sequelae]
  - Paraesthesia [Recovered/Resolved with Sequelae]
  - Idiopathic pulmonary fibrosis [Recovered/Resolved]
  - Pneumonitis [Not Recovered/Not Resolved]
  - Pulmonary fibrosis [Not Recovered/Not Resolved]
  - Abdominal pain upper [Unknown]
  - Hypertension [Recovered/Resolved]
  - Senile dementia [Unknown]
  - Arthralgia [Unknown]
  - Oxygen saturation decreased [Not Recovered/Not Resolved]
  - Thinking abnormal [Unknown]
  - Nausea [Unknown]
  - Arthralgia [Recovered/Resolved]
  - Blood pressure increased [Not Recovered/Not Resolved]

NARRATIVE: CASE EVENT DATE: 201809
